FAERS Safety Report 4906236-5 (Version None)
Quarter: 2006Q1

REPORT INFORMATION
  Report Type: 
  Country: None (occurrence: None)
  Receive Date: 20060207
  Receipt Date: 20060126
  Transmission Date: 20060701
  Serious: Yes (Hospitalization)
  Sender: FDA-Public Use
  Company Number: 2006014609

PATIENT
  Age: 35 Year
  Sex: Male

DRUGS (1)
  1. NIFEDIPINE [Suspect]
     Indication: HYPERTENSION
     Dosage: 30 MG, ORAL
     Route: 048

REACTIONS (4)
  - CONDITION AGGRAVATED [None]
  - EPISTAXIS [None]
  - HYPERTENSION [None]
  - THERAPY NON-RESPONDER [None]
